FAERS Safety Report 6299559-1 (Version None)
Quarter: 2009Q3

REPORT INFORMATION
  Report Type: 
  Country: None (occurrence: None)
  Receive Date: 20090806
  Receipt Date: 20090728
  Transmission Date: 20100115
  Serious: Yes (Other)
  Sender: FDA-Public Use
  Company Number: US-PFIZER INC-2009249695

PATIENT
  Sex: Female
  Weight: 63.492 kg

DRUGS (3)
  1. ZOLOFT [Suspect]
     Indication: DEPRESSION
     Dosage: FREQUENCY: 1X/DAY, EVERY DAY;
     Route: 048
     Dates: start: 19930101, end: 20090101
  2. VALIUM [Suspect]
     Indication: STRESS
  3. VALIUM [Suspect]
     Indication: INSOMNIA

REACTIONS (4)
  - CONVULSION [None]
  - DRUG SCREEN POSITIVE [None]
  - JOINT STIFFNESS [None]
  - ROAD TRAFFIC ACCIDENT [None]
